FAERS Safety Report 9706589 (Version 1)
Quarter: 2013Q4

REPORT INFORMATION
  Report Type: Spontaneous
  Country: US (occurrence: US)
  Receive Date: 20131125
  Receipt Date: 20131125
  Transmission Date: 20140711
  Serious: Yes (Life-Threatening, Other)
  Sender: FDA-Public Use
  Company Number: US-JNJFOC-20131112592

PATIENT
  Age: 46 Year
  Sex: Female
  Weight: 59.88 kg

DRUGS (3)
  1. SUDAFED 12 HOUR [Suspect]
     Indication: HYPERSENSITIVITY
     Route: 048
     Dates: start: 20131116, end: 20131116
  2. SUDAFED 12 HOUR [Suspect]
     Indication: NASAL CONGESTION
     Route: 048
     Dates: start: 20131116, end: 20131116
  3. NASAL SPRAY UNSPECIFIED [Concomitant]
     Indication: NASAL CONGESTION
     Route: 065

REACTIONS (4)
  - Anaphylactic shock [Recovered/Resolved]
  - Psychomotor hyperactivity [Recovered/Resolved]
  - Anxiety [Recovered/Resolved]
  - Insomnia [Recovered/Resolved]
